FAERS Safety Report 9538891 (Version 1)
Quarter: 2013Q2

REPORT INFORMATION
  Report Type: Spontaneous
  Country: US (occurrence: None)
  Receive Date: 20130517
  Receipt Date: 20130517
  Transmission Date: 20140414
  Serious: No
  Sender: FDA-Public Use
  Company Number: 1000042564

PATIENT
  Age: 55 Year
  Sex: Female

DRUGS (5)
  1. VIIBRYD [Suspect]
     Indication: MAJOR DEPRESSION
     Route: 048
     Dates: start: 20121201, end: 20121207
  2. TRIAMTERENE (TRIAMTERENE) (TRIAMTERENE) [Concomitant]
  3. ARMOUR THYROID (THYROID) (THYROID) [Concomitant]
  4. ESTROGEN (ESTRADIOL) (ESTRADIOL) [Concomitant]
  5. ZOVIRAX (ACYCLOVIR) (ACYCLOVIR) [Concomitant]

REACTIONS (4)
  - Tendon pain [None]
  - Diarrhoea [None]
  - Weight increased [None]
  - Apathy [None]
